FAERS Safety Report 10989749 (Version 2)
Quarter: 2015Q2

REPORT INFORMATION
  Report Type: Report from Study
  Country: BE (occurrence: BE)
  Receive Date: 20150406
  Receipt Date: 20150430
  Transmission Date: 20150821
  Serious: Yes (Other)
  Sender: FDA-Public Use
  Company Number: BE-AMGEN-BELNI2015031483

PATIENT
  Age: 48 Year
  Sex: Female

DRUGS (12)
  1. AZATHIOPRINE. [Concomitant]
     Active Substance: AZATHIOPRINE
  2. CLONIDINE. [Concomitant]
     Active Substance: CLONIDINE
  3. OXAZEPAM. [Concomitant]
     Active Substance: OXAZEPAM
  4. TEMAZEPAM. [Concomitant]
     Active Substance: TEMAZEPAM
  5. OXYCODONE [Concomitant]
     Active Substance: OXYCODONE
  6. PREDNISONE. [Concomitant]
     Active Substance: PREDNISONE
     Indication: RHEUMATOID ARTHRITIS
     Dosage: 7.5 MG, UNK
  7. CALCICHEW [Concomitant]
     Active Substance: CALCIUM CARBONATE
  8. PROLIA [Suspect]
     Active Substance: DENOSUMAB
     Indication: PRODUCT USED FOR UNKNOWN INDICATION
     Dosage: 60 MG, Q6MO
     Route: 058
     Dates: start: 201404
  9. DENOSUMAB [Suspect]
     Active Substance: DENOSUMAB
     Indication: PRODUCT USED FOR UNKNOWN INDICATION
     Dosage: UNK
     Route: 065
  10. CHAMPIX [Concomitant]
     Active Substance: VARENICLINE TARTRATE
  11. PANTOPRAZOLE [Concomitant]
     Active Substance: PANTOPRAZOLE SODIUM
  12. ATORVASTATIN [Concomitant]
     Active Substance: ATORVASTATIN

REACTIONS (1)
  - Osteonecrosis of jaw [Recovered/Resolved]

NARRATIVE: CASE EVENT DATE: 20141007
